FAERS Safety Report 6211242-7 (Version None)
Quarter: 2009Q2

REPORT INFORMATION
  Report Type: 
  Country: None (occurrence: None)
  Receive Date: 20090602
  Receipt Date: 20090521
  Transmission Date: 20091009
  Serious: Yes (Other)
  Sender: FDA-Public Use
  Company Number: PHEH2009US04924

PATIENT
  Sex: Male

DRUGS (16)
  1. RECLAST [Suspect]
     Indication: OSTEOPOROSIS
     Dosage: 5 MG, YEARLY
     Route: 042
     Dates: start: 20090424, end: 20090424
  2. MELATONIN [Concomitant]
     Dosage: 10 MG, QHS
  3. ZOLOFT [Concomitant]
     Dosage: 100 MG, QD
  4. CATAPRES                                /USA/ [Concomitant]
     Dosage: 0.1 MG, 1/2 PRN DIASTOLIC BP }=93, MAY REPEAT UP TO TID
  5. METHADONE HCL [Concomitant]
     Dosage: 10 MG, TID
     Route: 048
  6. HYDROCHLOROTHIAZIDE [Concomitant]
     Dosage: 25 MG, QD
     Route: 048
  7. MOBIC [Concomitant]
     Dosage: 7.5 MG, BID
  8. PRILOSEC [Concomitant]
     Dosage: 20 MG, BID, ON EMPTY STOMACH
  9. MYCELEX [Concomitant]
     Dosage: APPLY BID TO GROIN
  10. DUONEB [Concomitant]
     Dosage: 0.5-2.5/3; BID WITH PULMICORT
  11. SINGULAIR [Concomitant]
     Dosage: 10 MG, UNK
  12. MIRALAX [Concomitant]
     Dosage: UNK
  13. MSM [Concomitant]
     Dosage: 1000 MG, UNK
  14. PULMICORT-100 [Concomitant]
     Dosage: 0.5MG/2ML
  15. NASONEX [Concomitant]
     Dosage: 50 UG, UNK
  16. PHOS-NAK [Concomitant]
     Dosage: 280-250MG; BID

REACTIONS (24)
  - ABASIA [None]
  - ASTHENIA [None]
  - BLOOD CREATININE DECREASED [None]
  - BLOOD PRESSURE DECREASED [None]
  - BLOOD SODIUM DECREASED [None]
  - CONFUSIONAL STATE [None]
  - DEHYDRATION [None]
  - FAECAL INCONTINENCE [None]
  - FALL [None]
  - HAEMATOCRIT DECREASED [None]
  - HEART RATE INCREASED [None]
  - INFLUENZA LIKE ILLNESS [None]
  - JOINT INJURY [None]
  - LACK OF SPONTANEOUS SPEECH [None]
  - LETHARGY [None]
  - MUSCLE SPASMS [None]
  - MYALGIA [None]
  - PARALYSIS [None]
  - PITTING OEDEMA [None]
  - PYREXIA [None]
  - REACTION TO FOOD ADDITIVE [None]
  - RED CELL DISTRIBUTION WIDTH INCREASED [None]
  - TINEA CRURIS [None]
  - URINE OUTPUT DECREASED [None]
